FAERS Safety Report 13517959 (Version 1)
Quarter: 2017Q2

REPORT INFORMATION
  Report Type: Spontaneous
  Country: US (occurrence: US)
  Receive Date: 20170505
  Receipt Date: 20170505
  Transmission Date: 20170830
  Serious: No
  Sender: FDA-Public Use
  Company Number: US-GLAXOSMITHKLINE-US2017063049

PATIENT
  Age: 84 Year
  Sex: Female

DRUGS (2)
  1. ABREVA [Suspect]
     Active Substance: DOCOSANOL
     Dosage: UNK, 5 TIMES A DAY
     Dates: start: 20170424
  2. ABREVA [Suspect]
     Active Substance: DOCOSANOL
     Indication: ORAL HERPES
     Dosage: UNK

REACTIONS (5)
  - Application site infection [Not Recovered/Not Resolved]
  - Expired product administered [Unknown]
  - Dyskinesia [Unknown]
  - Application site haemorrhage [Recovered/Resolved]
  - Application site scab [Not Recovered/Not Resolved]
